FAERS Safety Report 14220421 (Version 1)
Quarter: 2017Q4

REPORT INFORMATION
  Report Type: Spontaneous
  Country: IT (occurrence: IT)
  Receive Date: 20171124
  Receipt Date: 20171124
  Transmission Date: 20180321
  Serious: Yes (Death, Life-Threatening, Other)
  Sender: FDA-Public Use
  Company Number: IT-GLAXOSMITHKLINE-IT2017179032

PATIENT
  Age: 42 Year
  Sex: Female

DRUGS (15)
  1. DIPOTASSIUM CLORAZEPATE [Concomitant]
     Active Substance: CLORAZEPATE DIPOTASSIUM
     Indication: PRODUCT USED FOR UNKNOWN INDICATION
     Dosage: UNK
  2. TOPIRAMATE. [Concomitant]
     Active Substance: TOPIRAMATE
     Indication: DECREASED APPETITE
  3. FLUOXETINE [Concomitant]
     Active Substance: FLUOXETINE HYDROCHLORIDE
     Indication: ANTIDEPRESSANT THERAPY
     Dosage: UNK
  4. CASCARA [Concomitant]
     Active Substance: RHAMNUS PURSHIANA BARK EXTRACT
     Indication: LAXATIVE SUPPORTIVE CARE
     Dosage: UNK
  5. SATIEREAL [Concomitant]
     Indication: PRODUCT USED FOR UNKNOWN INDICATION
     Dosage: UNK
  6. BUPROPION. [Suspect]
     Active Substance: BUPROPION
     Indication: OVERWEIGHT
     Dosage: 100 TO 150 MG/D ; CYCLICAL
     Route: 065
  7. PHENDIMETRAZINE. [Suspect]
     Active Substance: PHENDIMETRAZINE TARTRATE
     Indication: OVERWEIGHT
     Dosage: 100 TO 225 MG/D ; CYCLICAL
  8. PHENYLPROPANOLAMINE [Suspect]
     Active Substance: PHENYLPROPANOLAMINE
     Indication: OVERWEIGHT
     Dosage: 30-90 MG/D ; CYCLICAL
     Route: 065
  9. TOPIRAMATE. [Concomitant]
     Active Substance: TOPIRAMATE
     Indication: SEIZURE
     Dosage: UNK
  10. GINSENG [Concomitant]
     Active Substance: ASIAN GINSENG
     Indication: PRODUCT USED FOR UNKNOWN INDICATION
     Dosage: UNK
  11. GUARANA [Concomitant]
     Indication: PRODUCT USED FOR UNKNOWN INDICATION
     Dosage: UNK
  12. RHUBARB. [Concomitant]
     Active Substance: RHUBARB
     Indication: LAXATIVE SUPPORTIVE CARE
     Dosage: UNK
  13. ALOE VERA [Concomitant]
     Active Substance: ALOE VERA LEAF
     Indication: PRODUCT USED FOR UNKNOWN INDICATION
     Dosage: UNK
  14. GRIFFONIA EXTRACT [Concomitant]
     Indication: DECREASED APPETITE
     Dosage: UNK
  15. GLUCOMANNAN [Concomitant]
     Active Substance: KONJAC MANNAN
     Indication: DECREASED APPETITE
     Dosage: UNK

REACTIONS (4)
  - Cardiotoxicity [Fatal]
  - Sudden cardiac death [Fatal]
  - Myocarditis [Fatal]
  - Incorrect dose administered [Fatal]
